FAERS Safety Report 9832289 (Version 6)
Quarter: 2014Q2

REPORT INFORMATION
  Report Type: Report from Study
  Country: GB (occurrence: GB)
  Receive Date: 20140121
  Receipt Date: 20140410
  Transmission Date: 20141212
  Serious: Yes (Hospitalization, Other)
  Sender: FDA-Public Use
  Company Number: GB-BRISTOL-MYERS SQUIBB COMPANY-19711183

PATIENT
  Age: 13 Year
  Sex: Female

DRUGS (5)
  1. DASATINIB [Suspect]
     Indication: ACUTE LYMPHOCYTIC LEUKAEMIA
     Route: 048
     Dates: start: 20120927
  2. METHOTREXATE [Suspect]
     Dosage: 09OCT13?16OCT13
     Dates: start: 20130814
  3. AMBISONE [Concomitant]
  4. SEPTRIN [Concomitant]
     Dates: start: 20120915
  5. CO-TRIMOXAZOLE [Concomitant]
     Dates: start: 20120915

REACTIONS (6)
  - Hemiparesis [Recovered/Resolved]
  - Dysarthria [Recovered/Resolved]
  - Leukoencephalopathy [Unknown]
  - Localised infection [Recovered/Resolved]
  - Pyrexia [Recovered/Resolved]
  - Neutropenia [Recovered/Resolved]
